FAERS Safety Report 5233736-3 (Version None)
Quarter: 2007Q1

REPORT INFORMATION
  Report Type: 
  Country: None (occurrence: None)
  Receive Date: 20070208
  Receipt Date: 20070126
  Transmission Date: 20070707
  Serious: Yes (Life-Threatening)
  Sender: FDA-Public Use
  Company Number: GB-PFIZER INC-2006140975

PATIENT
  Age: 28 Year
  Sex: Female

DRUGS (1)
  1. DEPO-PROVERA [Suspect]
     Indication: CONTRACEPTION
     Dosage: FREQ:SINGLE INJECTION
     Route: 030
     Dates: start: 20031204, end: 20031204

REACTIONS (3)
  - RASH [None]
  - URTICARIA [None]
  - WHEEZING [None]
